FAERS Safety Report 8516184-X (Version None)
Quarter: 2012Q3

REPORT INFORMATION
  Report Type: 
  Country: None (occurrence: None)
  Receive Date: 20120717
  Receipt Date: 20120709
  Transmission Date: 20120928
  Serious: Yes (Other)
  Sender: FDA-Public Use
  Company Number: CA-ROCHE-1065451

PATIENT
  Sex: Female

DRUGS (1)
  1. OMALIZUMAB [Suspect]
     Indication: ASTHMA
     Route: 058
     Dates: start: 20100415

REACTIONS (16)
  - NASAL CONGESTION [None]
  - BRONCHOMALACIA [None]
  - SLEEP APNOEA SYNDROME [None]
  - RESPIRATORY TRACT CONGESTION [None]
  - HEADACHE [None]
  - SPUTUM DISCOLOURED [None]
  - CANDIDIASIS [None]
  - PSORIASIS [None]
  - WHEEZING [None]
  - LACRIMATION INCREASED [None]
  - NAUSEA [None]
  - NASOPHARYNGITIS [None]
  - PRODUCTIVE COUGH [None]
  - DIZZINESS [None]
  - BRONCHITIS [None]
  - VISUAL IMPAIRMENT [None]
